FAERS Safety Report 9970279 (Version 2)
Quarter: 2014Q2

REPORT INFORMATION
  Report Type: Report from Study
  Country: SE (occurrence: SE)
  Receive Date: 20140306
  Receipt Date: 20140421
  Transmission Date: 20141212
  Serious: Yes (Hospitalization)
  Sender: FDA-Public Use
  Company Number: SE-BRISTOL-MYERS SQUIBB COMPANY-20380051

PATIENT
  Age: 49 Year
  Sex: Male

DRUGS (12)
  1. ARIPIPRAZOLE [Suspect]
     Indication: SCHIZOPHRENIA
     Dosage: TABLETS?10MG?20MG:11FEB2014:17FEB2014:7DAYS?30MG:18FEB2014:21FEB14
     Route: 048
     Dates: start: 20140207, end: 20140221
  2. ALIMEMAZINE [Concomitant]
     Indication: ANXIETY
     Dosage: CAPSULES
     Route: 048
     Dates: start: 20110725, end: 20140304
  3. ENALAPRIL [Concomitant]
     Indication: HYPERTENSION
     Dosage: TABLETS
     Dates: start: 20111201
  4. SIMVASTATIN [Concomitant]
     Indication: DYSLIPIDAEMIA
     Dosage: TABLETS
     Dates: start: 20111222
  5. DIAZEPAM [Concomitant]
     Indication: ANXIETY
     Dosage: TABLETS
     Dates: start: 20130307, end: 20140222
  6. OLANZAPINE [Concomitant]
     Indication: PSYCHOTIC DISORDER
     Dosage: TABLETS?07MAR13:06FEB14:5MG/DAY
     Dates: start: 20130307, end: 20140212
  7. OLANZAPINE [Concomitant]
     Indication: ANXIETY
     Dosage: TABLETS?07MAR13:06FEB14:5MG/DAY
     Dates: start: 20130307, end: 20140212
  8. EDRONAX [Concomitant]
     Indication: DEPRESSION
     Dosage: TABLETS
     Dates: start: 20130603, end: 20140207
  9. NOZINAN [Concomitant]
     Indication: ANXIETY
     Dosage: TAB,25MG:09DEC13-06FEB14,50MG:21-24FEB14
     Dates: start: 20131209, end: 20140206
  10. IMOVANE [Concomitant]
     Indication: INSOMNIA
     Dosage: TABLETS
     Dates: start: 20140213
  11. THERALEN [Concomitant]
     Indication: INSOMNIA
     Dosage: DROPS
     Route: 048
     Dates: start: 20140217, end: 20140305
  12. TEMESTA [Concomitant]
     Indication: ANXIETY
     Dosage: TABLETS
     Dates: start: 20140218, end: 20140224

REACTIONS (1)
  - Acute psychosis [Recovered/Resolved]
